FAERS Safety Report 5890051-2 (Version None)
Quarter: 2008Q3

REPORT INFORMATION
  Report Type: 
  Country: None (occurrence: None)
  Receive Date: 20080919
  Receipt Date: 20080909
  Transmission Date: 20090109
  Serious: Yes (Other)
  Sender: FDA-Public Use
  Company Number: GB-PFIZER INC-2008056590

PATIENT
  Sex: Female
  Weight: 63 kg

DRUGS (3)
  1. TRANEXAMIC ACID (IV) [Suspect]
     Indication: ENDARTERECTOMY
     Route: 042
     Dates: start: 20080701, end: 20080701
  2. TRANEXAMIC ACID (IV) [Suspect]
     Route: 042
     Dates: start: 20080701, end: 20080701
  3. TRANEXAMIC ACID (IV) [Suspect]
     Route: 042
     Dates: start: 20080701, end: 20080701

REACTIONS (1)
  - GRAND MAL CONVULSION [None]
